FAERS Safety Report 6255783-5 (Version None)
Quarter: 2009Q3

REPORT INFORMATION
  Report Type: 
  Country: None (occurrence: None)
  Receive Date: 20090703
  Receipt Date: 20071105
  Transmission Date: 20100115
  Serious: Yes (Hospitalization, Other)
  Sender: FDA-Public Use
  Company Number: US-ASTRAZENECA-2007UW10968

PATIENT
  Age: 630 Month
  Sex: Female
  Weight: 76.7 kg

DRUGS (17)
  1. SEROQUEL [Suspect]
     Indication: SLEEP DISORDER
     Route: 048
     Dates: start: 20020101
  2. SEROQUEL [Suspect]
     Dosage: 25 MG FOUR TABLETS EVERY NIGHT
     Route: 048
     Dates: start: 20030514
  3. SEROQUEL [Suspect]
     Route: 048
     Dates: start: 20030620
  4. SEROQUEL [Suspect]
     Dosage: 100 MG TWO TABLETS AT NIGHT
     Route: 048
     Dates: start: 20030723
  5. SEROQUEL [Suspect]
     Dosage: 100 MG THREE TABLETS AT NIGHT
     Route: 048
     Dates: start: 20030915
  6. SEROQUEL [Suspect]
     Dosage: 200 MG TWO TABLETS AT NIGHT
     Route: 048
     Dates: start: 20031001
  7. SEROQUEL [Suspect]
     Dosage: 200 MG THREE TABLETS AT NIGHT
     Route: 048
     Dates: start: 20031202
  8. SEROQUEL [Suspect]
     Dosage: 300 MG ONE TABLET IN MORNING, 300 MG TWO TABLETS IN EVENING
     Route: 048
     Dates: start: 20060920
  9. SEROQUEL [Suspect]
     Route: 048
     Dates: start: 20070115
  10. VALIUM [Concomitant]
     Dates: start: 20030514
  11. TEGRETOL [Concomitant]
     Dosage: 200 MG TWO TABLET TWICE A DAY
     Dates: start: 20060116
  12. GEODON [Concomitant]
     Dosage: 40 MG EVERYDAY, 80 MG TWO TIMES A DAY
     Dates: start: 20030514
  13. MIRTAZAPINE [Concomitant]
     Dates: start: 20060116
  14. PANGESTYME [Concomitant]
     Dosage: TWO WITH EACH MEAL
     Dates: start: 20060116
  15. TRILEPTAL [Concomitant]
     Dates: start: 20030514
  16. PROZAC [Concomitant]
     Dosage: 20 MG EVERYDAY, 20 MG TWO TIMES A DAY
     Dates: start: 20030514
  17. CRESTOR [Concomitant]
     Route: 048
     Dates: start: 20070904

REACTIONS (4)
  - PANCREATITIS [None]
  - PANCREATITIS ACUTE [None]
  - PANCREATITIS CHRONIC [None]
  - PANCREATITIS RELAPSING [None]
